FAERS Safety Report 16993468 (Version 1)
Quarter: 2019Q4

REPORT INFORMATION
  Report Type: Spontaneous
  Country: US (occurrence: US)
  Receive Date: 20190923
  Receipt Date: 20190923
  Transmission Date: 20200122
  Serious: No
  Sender: FDA-Public Use
  Company Number: None

PATIENT
  Age: 59 Year
  Sex: Male

DRUGS (1)
  1. HUMIRA [Suspect]
     Active Substance: ADALIMUMAB
     Indication: PSORIASIS
     Dosage: ?          OTHER DOSE:40MG/0.4ML;OTHER FREQUENCY:EVERY 2 WEEKS;?
     Route: 058
     Dates: start: 20190731

REACTIONS (2)
  - Therapy cessation [None]
  - Inappropriate schedule of product administration [None]

NARRATIVE: CASE EVENT DATE: 20190920
